FAERS Safety Report 10014552 (Version 2)
Quarter: 2014Q2

REPORT INFORMATION
  Report Type: Spontaneous
  Country: IT (occurrence: IT)
  Receive Date: 20140317
  Receipt Date: 20140501
  Transmission Date: 20141212
  Serious: Yes (Life-Threatening)
  Sender: FDA-Public Use
  Company Number: IT-BAYER-2014-035755

PATIENT
  Age: 25 Year
  Sex: Female
  Weight: 48 kg

DRUGS (1)
  1. YAZ [Suspect]
     Indication: ORAL CONTRACEPTION
     Dosage: 1 DF, QD
     Route: 048
     Dates: start: 20130501, end: 20140220

REACTIONS (5)
  - Cerebral ischaemia [Recovering/Resolving]
  - Coma [Recovering/Resolving]
  - Hemiplegia [Recovering/Resolving]
  - Hydrocephalus [Recovering/Resolving]
  - Intracranial venous sinus thrombosis [Recovering/Resolving]
